FAERS Safety Report 11972299 (Version 1)
Quarter: 2016Q1

REPORT INFORMATION
  Report Type: Spontaneous
  Country: AU (occurrence: AU)
  Receive Date: 20160128
  Receipt Date: 20160128
  Transmission Date: 20160526
  Serious: Yes (Other)
  Sender: FDA-Public Use
  Company Number: AU-MYLANLABS-2016M1003126

PATIENT

DRUGS (10)
  1. ESMOLOL [Suspect]
     Active Substance: ESMOLOL HYDROCHLORIDE
     Indication: ATRIAL FLUTTER
  2. SOTALOL. [Suspect]
     Active Substance: SOTALOL
     Indication: ATRIAL FLUTTER
  3. FLECAINIDE [Suspect]
     Active Substance: FLECAINIDE
     Indication: ATRIAL FLUTTER
  4. AMIODARONE [Suspect]
     Active Substance: AMIODARONE
     Indication: ATRIAL FLUTTER
  5. AMIODARONE [Suspect]
     Active Substance: AMIODARONE
     Indication: NEONATAL TACHYCARDIA
     Dosage: 15MCG/KG/MIN
     Route: 041
  6. DIGOXIN. [Suspect]
     Active Substance: DIGOXIN
     Indication: NEONATAL TACHYCARDIA
     Dosage: 8 MCG/KG/MIN
     Route: 048
  7. DIGOXIN. [Suspect]
     Active Substance: DIGOXIN
     Indication: ATRIAL FLUTTER
  8. ESMOLOL [Suspect]
     Active Substance: ESMOLOL HYDROCHLORIDE
     Indication: NEONATAL TACHYCARDIA
     Dosage: UP TO 175MCG/KG/MIN
     Route: 042
  9. FLECAINIDE [Suspect]
     Active Substance: FLECAINIDE
     Indication: NEONATAL TACHYCARDIA
     Dosage: 4MG/KG/MIN
     Route: 065
  10. SOTALOL. [Suspect]
     Active Substance: SOTALOL
     Indication: NEONATAL TACHYCARDIA
     Dosage: 4.5MG/KG/MIN
     Route: 065

REACTIONS (1)
  - Treatment failure [Unknown]
